FAERS Safety Report 25576744 (Version 1)
Quarter: 2025Q3

REPORT INFORMATION
  Report Type: Spontaneous
  Country: US (occurrence: None)
  Receive Date: 20250717
  Receipt Date: 20250717
  Transmission Date: 20251021
  Serious: Yes (Other)
  Sender: FDA-CTU
  Company Number: None

PATIENT
  Age: 79 Year
  Sex: Male

DRUGS (2)
  1. LENALIDOMIDE [Suspect]
     Active Substance: LENALIDOMIDE
     Indication: Plasma cell myeloma
     Dosage: FREQUENCY : DAILY;?
     Route: 048
     Dates: start: 20250124
  2. FLUOCINONIDE [Suspect]
     Active Substance: FLUOCINONIDE

REACTIONS (6)
  - Eczema [None]
  - Skin exfoliation [None]
  - Inflammation [None]
  - Eye irritation [None]
  - Application site pain [None]
  - Rash [None]

NARRATIVE: CASE EVENT DATE: 20250711
